FAERS Safety Report 21982366 (Version 1)
Quarter: 2023Q1

REPORT INFORMATION
  Report Type: Spontaneous
  Country: CA (occurrence: CA)
  Receive Date: 20230213
  Receipt Date: 20230213
  Transmission Date: 20230417
  Serious: Yes (Other)
  Sender: FDA-Public Use
  Company Number: CA-JNJFOC-20230218949

PATIENT
  Age: 29 Year
  Sex: Female
  Weight: 71 kg

DRUGS (6)
  1. REMICADE [Suspect]
     Active Substance: INFLIXIMAB
     Indication: Colitis ulcerative
     Route: 041
  2. INFLIXIMAB [Suspect]
     Active Substance: INFLIXIMAB
     Indication: Colitis ulcerative
     Route: 042
  3. INFLIXIMAB [Suspect]
     Active Substance: INFLIXIMAB
     Route: 042
  4. MESALAMINE [Concomitant]
     Active Substance: MESALAMINE
     Route: 048
  5. MESALAMINE [Concomitant]
     Active Substance: MESALAMINE
     Route: 048
  6. CITALOPRAM [Concomitant]
     Active Substance: CITALOPRAM HYDROBROMIDE

REACTIONS (7)
  - Haematochezia [Recovered/Resolved]
  - Nasopharyngitis [Recovered/Resolved]
  - Frequent bowel movements [Recovered/Resolved]
  - Condition aggravated [Recovered/Resolved]
  - Rash erythematous [Recovered/Resolved]
  - Rash macular [Recovered/Resolved]
  - Inappropriate schedule of product administration [Recovered/Resolved]
